FAERS Safety Report 14280490 (Version 1)
Quarter: 2017Q4

REPORT INFORMATION
  Report Type: Spontaneous
  Country: SE (occurrence: SE)
  Receive Date: 20171213
  Receipt Date: 20171213
  Transmission Date: 20180321
  Serious: Yes (Other)
  Sender: FDA-Public Use
  Company Number: PHHY2017SE172320

PATIENT
  Sex: Female

DRUGS (2)
  1. COSENTYX [Suspect]
     Active Substance: SECUKINUMAB
     Indication: PSORIATIC ARTHROPATHY
     Route: 065
  2. COSENTYX [Suspect]
     Active Substance: SECUKINUMAB
     Indication: PSORIASIS

REACTIONS (7)
  - Pruritus [Unknown]
  - Loose tooth [Unknown]
  - Subcutaneous abscess [Unknown]
  - Skin wound [Unknown]
  - Erythema [Unknown]
  - Ear disorder [Unknown]
  - Dental restoration failure [Unknown]
